FAERS Safety Report 8922622 (Version 1)
Quarter: 2012Q4

REPORT INFORMATION
  Report Type: Spontaneous
  Country: US (occurrence: None)
  Receive Date: 20121115
  Receipt Date: 20121115
  Transmission Date: 20130627
  Serious: Yes (Disabling)
  Sender: FDA-Public Use
  Company Number: COL_12670_2012

PATIENT
  Age: 53 Year
  Sex: Male

DRUGS (1)
  1. COLGATE BAKING SODA AND PEROXIDE WHITENING BRISK MINT [Suspect]
     Indication: DENTAL CARIES
     Dosage: Covered half of toothbrush head
     Route: 048
     Dates: start: 201209

REACTIONS (4)
  - Toothache [None]
  - Tooth fracture [None]
  - Tooth injury [None]
  - Sensitivity of teeth [None]
